FAERS Safety Report 21228227 (Version 1)
Quarter: 2022Q3

REPORT INFORMATION
  Report Type: Spontaneous
  Country: US (occurrence: US)
  Receive Date: 20220818
  Receipt Date: 20220818
  Transmission Date: 20221027
  Serious: No
  Sender: FDA-Public Use
  Company Number: US-AMNEAL PHARMACEUTICALS-2022-AMRX-01776

PATIENT
  Age: 60 Year
  Sex: Male

DRUGS (2)
  1. SPIRONOLACTONE [Suspect]
     Active Substance: SPIRONOLACTONE
     Indication: Product used for unknown indication
     Dosage: UNK
     Route: 048
  2. EPLERENONE [Suspect]
     Active Substance: EPLERENONE
     Indication: Hypertension
     Dosage: UNK, 1 /DAY
     Route: 048
     Dates: start: 202201

REACTIONS (4)
  - Breast mass [Recovered/Resolved]
  - Nipple pain [Recovered/Resolved]
  - Skin discolouration [Recovered/Resolved]
  - Condition aggravated [Recovered/Resolved]

NARRATIVE: CASE EVENT DATE: 20220401
